FAERS Safety Report 8369595-X (Version None)
Quarter: 2012Q2

REPORT INFORMATION
  Report Type: 
  Country: None (occurrence: None)
  Receive Date: 20120518
  Receipt Date: 20120515
  Transmission Date: 20120825
  Serious: No
  Sender: FDA-Public Use
  Company Number: PHEH2012US010253

PATIENT
  Sex: Female
  Weight: 50.794 kg

DRUGS (11)
  1. PROMETHAZINE [Concomitant]
     Dosage: 25 MG,
  2. TOPROL-XL [Concomitant]
     Dosage: 25 MG,
  3. FENOFIBRATE [Concomitant]
     Dosage: 134 MG,
  4. FOLIC ACID [Concomitant]
  5. METFORMIN HCL [Concomitant]
     Dosage: 1 DF,
  6. TRIAMTERENE AND HYDROCHLOROTHIAZIDE [Concomitant]
  7. NORVASC [Concomitant]
     Dosage: 1 DF,
  8. TASIGNA [Suspect]
     Dosage: 400 MG, BID
     Route: 048
  9. IRON [Concomitant]
     Dosage: 18 MG,
  10. LISINOPRIL [Concomitant]
     Dosage: 2.5 MG,
  11. CRESTOR [Concomitant]
     Dosage: 1 DF,

REACTIONS (3)
  - NAUSEA [None]
  - ABDOMINAL PAIN UPPER [None]
  - BACK PAIN [None]
